FAERS Safety Report 5393758-9 (Version None)
Quarter: 2007Q3

REPORT INFORMATION
  Report Type: 
  Country: None (occurrence: None)
  Receive Date: 20070719
  Receipt Date: 20070719
  Transmission Date: 20080115
  Serious: Yes (Hospitalization)
  Sender: FDA-Public Use
  Company Number: None

PATIENT
  Sex: Female
  Weight: 88 kg

DRUGS (2)
  1. CARBOPLATIN [Suspect]
     Dosage: 696 MG
  2. TAXOL [Suspect]
     Dosage: 331 MG

REACTIONS (9)
  - ANXIETY [None]
  - ARTHRALGIA [None]
  - FEELING HOT [None]
  - FLUSHING [None]
  - HYPOAESTHESIA [None]
  - MYALGIA [None]
  - PARAESTHESIA [None]
  - REFUSAL OF TREATMENT BY PATIENT [None]
  - SYNCOPE VASOVAGAL [None]
